FAERS Safety Report 7171411-9 (Version None)
Quarter: 2010Q4

REPORT INFORMATION
  Report Type: 
  Country: None (occurrence: None)
  Receive Date: 20101217
  Receipt Date: 20101213
  Transmission Date: 20110411
  Serious: Yes (Death, Hospitalization)
  Sender: FDA-Public Use
  Company Number: US-ASTRAZENECA-2009UW14853

PATIENT
  Age: 13 Year
  Sex: Male

DRUGS (3)
  1. SEROQUEL [Suspect]
     Indication: CONVULSION PROPHYLAXIS
     Route: 048
     Dates: start: 20090101, end: 20090101
  2. ZYPREXA [Concomitant]
  3. CYMBALTA [Concomitant]

REACTIONS (3)
  - COMPLETED SUICIDE [None]
  - CONVULSION [None]
  - DRUG TOXICITY [None]
